FAERS Safety Report 9441386 (Version 1)
Quarter: 2013Q3

REPORT INFORMATION
  Report Type: Spontaneous
  Country: US (occurrence: US)
  Receive Date: 20130805
  Receipt Date: 20130805
  Transmission Date: 20140515
  Serious: No
  Sender: FDA-Public Use
  Company Number: US-009507513-1307USA016380

PATIENT
  Sex: Female
  Weight: 69.75 kg

DRUGS (3)
  1. ZETIA [Suspect]
     Indication: BLOOD CHOLESTEROL
     Dosage: UNK
     Route: 048
  2. SYNTHROID [Concomitant]
  3. CELEBREX [Concomitant]

REACTIONS (1)
  - Drug ineffective [Unknown]
